FAERS Safety Report 5202115-7 (Version None)
Quarter: 2007Q1

REPORT INFORMATION
  Report Type: 
  Country: None (occurrence: None)
  Receive Date: 20070103
  Receipt Date: 20061221
  Transmission Date: 20070707
  Serious: Yes (Hospitalization, Other)
  Sender: FDA-Public Use
  Company Number: FRWYE923021DEC06

PATIENT
  Age: 60 Year
  Sex: Male

DRUGS (5)
  1. PIPERACILLIN AND TAZOBACTAM [Suspect]
     Indication: CHOLECYSTITIS ACUTE
     Dosage: 10G TOTAL DAILY INTRAVENOUS
     Route: 042
     Dates: start: 20060602, end: 20060616
  2. PIPERACILLIN AND TAZOBACTAM [Suspect]
     Indication: SEPTIC SHOCK
     Dosage: 10G TOTAL DAILY INTRAVENOUS
     Route: 042
     Dates: start: 20060602, end: 20060616
  3. FLAGYL [Suspect]
     Indication: CHOLECYSTITIS ACUTE
     Dosage: 1.5 G DAILY INTRAVENOUS
     Route: 042
     Dates: start: 20060602, end: 20060616
  4. FLAGYL [Suspect]
     Indication: SEPTIC SHOCK
     Dosage: 1.5 G DAILY INTRAVENOUS
     Route: 042
     Dates: start: 20060602, end: 20060616
  5. ZOVIRAX [Concomitant]

REACTIONS (2)
  - AGRANULOCYTOSIS [None]
  - GRANULOCYTES MATURATION ARREST [None]
